FAERS Safety Report 10361214 (Version 1)
Quarter: 2014Q3

REPORT INFORMATION
  Report Type: Spontaneous
  Country: US (occurrence: None)
  Receive Date: 20140731
  Receipt Date: 20140731
  Transmission Date: 20150326
  Serious: Yes (Hospitalization, Other)
  Sender: FDA-Public Use
  Company Number: AUR-APL-2014-08139

PATIENT
  Age: 74 Year
  Sex: Male

DRUGS (22)
  1. PREVACID [Suspect]
     Active Substance: LANSOPRAZOLE
     Indication: GASTRIC DISORDER
  2. ADVAIR DISKUS [Suspect]
     Active Substance: FLUTICASONE PROPIONATE\SALMETEROL XINAFOATE
     Indication: ASTHMA
     Dosage: 1 DF, 2X/DAY (500/50 MCG 1 PUFF, BID), RESPIRATORY
     Route: 055
     Dates: start: 20040723, end: 20070516
  3. LASIX [Concomitant]
     Active Substance: FUROSEMIDE
  4. NITROFURANTOIN (NITROFURANTOIN) [Suspect]
     Active Substance: NITROFURANTOIN
     Indication: PRODUCT USED FOR UNKNOWN INDICATION
  5. VANCOMYCIN (VANCOMYCIN) [Suspect]
     Active Substance: VANCOMYCIN
     Indication: PRODUCT USED FOR UNKNOWN INDICATION
  6. ZEBETA [Suspect]
     Active Substance: BISOPROLOL FUMARATE
     Indication: PRODUCT USED FOR UNKNOWN INDICATION
  7. COREG [Suspect]
     Active Substance: CARVEDILOL
     Indication: PRODUCT USED FOR UNKNOWN INDICATION
  8. 6)?LIPITOR (ATORVASTATIN CALCIUM) [Concomitant]
  9. 7)?XOPENEX (LEVOSALBUTAMOL HYDROCHLORIDE) [Concomitant]
  10. ISOSORBIDE MONONITRATE (ISOSORBIDE MONONITRATE) [Suspect]
     Active Substance: ISOSORBIDE MONONITRATE
     Indication: PRODUCT USED FOR UNKNOWN INDICATION
  11. AMLODIPINE BESILATE (AMLODIPINE BESILATE) [Suspect]
     Active Substance: AMLODIPINE BESYLATE
     Indication: PRODUCT USED FOR UNKNOWN INDICATION
  12. PHENOXYMETHYLPENICILLIN POTASSIUM K (PHENOXYMETHYLPENICILLIN POTASSIUM) [Suspect]
     Active Substance: PENICILLIN V POTASSIUM
     Indication: PRODUCT USED FOR UNKNOWN INDICATION
  13. 5)?ZOLOFT (SERTRALINE HYDROCHLORIDE) [Concomitant]
  14. COTRIMOXAZOLE [Suspect]
     Active Substance: SULFAMETHOXAZOLE\TRIMETHOPRIM
     Indication: PRODUCT USED FOR UNKNOWN INDICATION
  15. DESLORATADINE (DESLORATADINE) [Suspect]
     Active Substance: DESLORATADINE
     Indication: PRODUCT USED FOR UNKNOWN INDICATION
  16. RANEXA (RANOLAZINE) [Concomitant]
  17. MEXILETINE (MEXILETINE) [Concomitant]
  18. LANOXIN [Concomitant]
     Active Substance: DIGOXIN
  19. FLONASE [Concomitant]
     Active Substance: FLUTICASONE PROPIONATE
  20. LEVOFLOXACIN (LEVOFLOXACIN) UNKNOWN, 1000MG [Suspect]
     Active Substance: LEVOFLOXACIN
     Indication: PRODUCT USED FOR UNKNOWN INDICATION
  21. METRONIDAZOLE (METRONIDAZOLE) [Suspect]
     Active Substance: METRONIDAZOLE
     Indication: PRODUCT USED FOR UNKNOWN INDICATION
  22. COUMADIN [Concomitant]
     Active Substance: WARFARIN SODIUM

REACTIONS (12)
  - Diarrhoea [None]
  - Drug hypersensitivity [None]
  - Cardiac flutter [None]
  - Pruritus [None]
  - Headache [None]
  - Asthma [None]
  - Rash [None]
  - Respiratory therapy [None]
  - Dizziness [None]
  - Arrhythmia [None]
  - Dyspnoea [None]
  - Swelling [None]

NARRATIVE: CASE EVENT DATE: 201304
